FAERS Safety Report 5136227-3 (Version None)
Quarter: 2006Q4

REPORT INFORMATION
  Report Type: 
  Country: None (occurrence: None)
  Receive Date: 20061027
  Receipt Date: 20061017
  Transmission Date: 20070319
  Serious: Yes (Hospitalization)
  Sender: FDA-Public Use
  Company Number: FR-ROCHE-467826

PATIENT
  Age: 19 Year
  Sex: Male

DRUGS (13)
  1. CELLCEPT [Suspect]
     Route: 065
     Dates: end: 20060823
  2. CYCLOSPORINE [Suspect]
     Route: 042
     Dates: start: 20060728
  3. CYCLOSPORINE [Suspect]
     Route: 048
     Dates: end: 20060814
  4. VFEND [Suspect]
     Indication: ASPERGILLOSIS
     Route: 048
     Dates: start: 20060802, end: 20060803
  5. VFEND [Suspect]
     Route: 048
     Dates: start: 20060803, end: 20060811
  6. TRIFLUCAN [Suspect]
     Indication: CANDIDIASIS
     Route: 042
     Dates: start: 20060724
  7. TRIFLUCAN [Suspect]
     Route: 048
     Dates: start: 20060801, end: 20060810
  8. FORTUM [Concomitant]
     Dosage: 24 JULY - 31 JULY DOSE = 9 GRAM/DAY, 1 AUGUST TO 5 AUGUST DOSE = 6 GRAM/DAY.
     Route: 042
     Dates: start: 20060724, end: 20060805
  9. ORBENIN CAP [Concomitant]
     Route: 042
     Dates: start: 20060724, end: 20060810
  10. ZOFRAN [Concomitant]
     Route: 042
     Dates: start: 20060724, end: 20060728
  11. ERYTROMYCINE [Concomitant]
     Route: 048
     Dates: start: 20060731
  12. ZELITREX [Concomitant]
     Dates: start: 20060801, end: 20060804
  13. NEORECORMON [Concomitant]
     Dates: start: 20060804, end: 20060828

REACTIONS (5)
  - ASPERGILLOSIS [None]
  - EPSTEIN-BARR VIRUS INFECTION [None]
  - GENERAL PHYSICAL HEALTH DETERIORATION [None]
  - HEPATIC FAILURE [None]
  - RENAL FAILURE [None]
